FAERS Safety Report 6134403-4 (Version None)
Quarter: 2009Q1

REPORT INFORMATION
  Report Type: 
  Country: None (occurrence: None)
  Receive Date: 20090327
  Receipt Date: 20090318
  Transmission Date: 20090719
  Serious: Yes (Death, Hospitalization)
  Sender: FDA-Public Use
  Company Number: FR-CELGENEUS-056-20484-09031738

PATIENT
  Sex: Female

DRUGS (1)
  1. INNOHEP [Suspect]
     Indication: SUBCLAVIAN VEIN THROMBOSIS
     Route: 058
     Dates: start: 20090127, end: 20090201

REACTIONS (2)
  - LOCAL REACTION [None]
  - RENAL NEOPLASM [None]
